FAERS Safety Report 9075603 (Version 1)
Quarter: 2013Q1

REPORT INFORMATION
  Report Type: Report from Study
  Country: US (occurrence: US)
  Receive Date: 20130129
  Receipt Date: 20130129
  Transmission Date: 20140127
  Serious: No
  Sender: FDA-Public Use
  Company Number: US-ABBOTT-12P-163-0936787-00

PATIENT
  Age: 46 Year
  Sex: Female

DRUGS (6)
  1. HUMIRA 40 MG/0.8 ML PEN [Suspect]
     Indication: PSORIASIS
     Dates: start: 201202
  2. VITAMIN C [Concomitant]
     Indication: VITAMIN SUPPLEMENTATION
  3. POTASSIUM [Concomitant]
     Indication: MINERAL SUPPLEMENTATION
  4. FISH OIL [Concomitant]
     Indication: SUPPLEMENTATION THERAPY
  5. HYDROCHLOROTHIAZIDE [Concomitant]
     Indication: PRODUCT USED FOR UNKNOWN INDICATION
  6. MULTIVITAMIN [Concomitant]
     Indication: VITAMIN SUPPLEMENTATION

REACTIONS (6)
  - Weight increased [Not Recovered/Not Resolved]
  - Nail disorder [Not Recovered/Not Resolved]
  - Injection site bruising [Unknown]
  - Rosacea [Not Recovered/Not Resolved]
  - Rosacea [Not Recovered/Not Resolved]
  - Rosacea [Not Recovered/Not Resolved]
